FAERS Safety Report 8601653-4 (Version None)
Quarter: 2012Q3

REPORT INFORMATION
  Report Type: 
  Country: None (occurrence: None)
  Receive Date: 20120817
  Receipt Date: 20120806
  Transmission Date: 20120928
  Serious: Yes (Other)
  Sender: FDA-Public Use
  Company Number: PL-PFIZER INC-2012129778

PATIENT
  Age: 36 Year
  Sex: Female

DRUGS (2)
  1. PAROXETINE [Suspect]
     Indication: DEPRESSION
     Dosage: 20 MG/DAY
     Route: 065
  2. SERTRALINE HYDROCHLORIDE [Suspect]
     Indication: DEPRESSION
     Dosage: 50 MG/DAY
     Route: 065

REACTIONS (6)
  - CONDITION AGGRAVATED [None]
  - BREAST ENLARGEMENT [None]
  - AMENORRHOEA [None]
  - UTERINE HAEMORRHAGE [None]
  - THERAPEUTIC RESPONSE DECREASED [None]
  - HYPERPROLACTINAEMIA [None]
